FAERS Safety Report 19743926 (Version 1)
Quarter: 2021Q3

REPORT INFORMATION
  Report Type: Spontaneous
  Country: GB (occurrence: GB)
  Receive Date: 20210825
  Receipt Date: 20210825
  Transmission Date: 20211014
  Serious: Yes (Life-Threatening, Hospitalization, Other)
  Sender: FDA-Public Use
  Company Number: GB-TEVA-2021-GB-1944473

PATIENT
  Sex: Female

DRUGS (3)
  1. CYCLOPHOSPHAMIDE. [Suspect]
     Active Substance: CYCLOPHOSPHAMIDE
     Indication: POLYCHONDRITIS
     Dosage: SIX CYCLES
     Route: 042
  2. PREDNISOLONE. [Suspect]
     Active Substance: PREDNISOLONE
     Indication: POLYCHONDRITIS
     Dosage: 60 MILLIGRAM DAILY;
     Route: 065
  3. AZACITIDINE. [Suspect]
     Active Substance: AZACITIDINE
     Indication: POLYCHONDRITIS
     Route: 065

REACTIONS (9)
  - Viral infection [Recovering/Resolving]
  - Pneumocystis jirovecii infection [Unknown]
  - Respiratory failure [Recovering/Resolving]
  - Hypogammaglobulinaemia [Unknown]
  - Lower respiratory tract infection [Unknown]
  - Lymphopenia [Unknown]
  - Weight increased [Recovering/Resolving]
  - Pseudomonas infection [Unknown]
  - Steroid diabetes [Unknown]
